FAERS Safety Report 5623116-0 (Version None)
Quarter: 2008Q1

REPORT INFORMATION
  Report Type: 
  Country: None (occurrence: None)
  Receive Date: 20080212
  Receipt Date: 20080207
  Transmission Date: 20080703
  Serious: Yes (Hospitalization)
  Sender: FDA-Public Use
  Company Number: A0708133A

PATIENT
  Age: 57 Year
  Sex: Female

DRUGS (18)
  1. ADVAIR DISKUS 100/50 [Suspect]
     Dosage: 1PUFF TWICE PER DAY
     Route: 055
     Dates: start: 20060901
  2. INSULIN [Concomitant]
  3. HYDROCHLOROTHIAZIDE [Concomitant]
  4. ACTOS [Concomitant]
  5. ACYCLOVIR [Concomitant]
  6. AVAPRO [Concomitant]
  7. EPOGEN [Concomitant]
  8. CARVEDILOL [Concomitant]
  9. UNSPECIFIED MEDICATION [Concomitant]
  10. SYNTHROID [Concomitant]
  11. CYCLOSPORINE [Concomitant]
  12. ACETAMINOPHEN [Concomitant]
  13. RHINOCORT [Concomitant]
  14. PLAVIX [Concomitant]
  15. PREDNISONE TAB [Concomitant]
  16. PROTONIX [Concomitant]
  17. PRAVACHOL [Concomitant]
  18. CIPRO [Concomitant]

REACTIONS (3)
  - ALOPECIA [None]
  - BRONCHITIS [None]
  - RESPIRATORY TRACT INFECTION [None]
